FAERS Safety Report 4277996-4 (Version None)
Quarter: 2004Q1

REPORT INFORMATION
  Report Type: 
  Country: None (occurrence: None)
  Receive Date: 20040121
  Receipt Date: 20041105
  Transmission Date: 20041129
  Serious: Yes (Hospitalization)
  Sender: FDA-Public Use
  Company Number: A02200400027

PATIENT
  Age: 44 Year
  Sex: Female

DRUGS (7)
  1. STILNOX - (ZOLPIDEM) - TABELT - 10 MG [Suspect]
     Dosage: 10 MG OD, ORAL
     Route: 048
     Dates: start: 20021015, end: 20030522
  2. LEVOTHYROXINE SODIUM [Suspect]
     Dosage: 100 MCG QD, ORAL
     Route: 048
  3. LEXOMIL - (BROMAZEPAM) - TABLET 6 MG [Suspect]
     Dosage: 3 MG OD, ORAL
     Route: 048
     Dates: start: 20020615, end: 20030522
  4. AREDIA [Suspect]
     Dosage: 90 MG 1/MONTH, INTRVENOUS NOS
     Route: 042
     Dates: start: 20030218, end: 20030522
  5. MOPRAL - (OMEPRAZOLE) - CAPSULE -20 MG [Suspect]
     Dosage: 20 MG OD, ORAL
     Route: 048
     Dates: start: 20020615, end: 20030522
  6. SPORANOX [Suspect]
     Dosage: 400 MG OD , ORAL
     Route: 048
     Dates: start: 20020815, end: 20030815
  7. EFFERALGAN - (PARACETAMOL) - UNKNOWN - UNIT DOSE : UNKNOWN [Suspect]
     Dosage: ORAL
     Route: 048
     Dates: end: 20030522

REACTIONS (2)
  - CONJUNCTIVAL HAEMORRHAGE [None]
  - THROMBOCYTOPENIA [None]
